FAERS Safety Report 14195643 (Version 1)
Quarter: 2017Q4

REPORT INFORMATION
  Report Type: Spontaneous
  Country: US (occurrence: US)
  Receive Date: 20171116
  Receipt Date: 20171116
  Transmission Date: 20180321
  Serious: No
  Sender: FDA-Public Use
  Company Number: US-BAUSCH-BL-2015-002085

PATIENT
  Age: 61 Year
  Sex: Male

DRUGS (8)
  1. XENAZINE [Suspect]
     Active Substance: TETRABENAZINE
     Indication: HUNTINGTON^S DISEASE
     Dosage: FOR 1 WEEK
     Route: 048
     Dates: start: 20150120, end: 20150127
  2. FLEXERIL [Concomitant]
     Active Substance: CYCLOBENZAPRINE HYDROCHLORIDE
     Indication: PRODUCT USED FOR UNKNOWN INDICATION
  3. KLONOPIN [Concomitant]
     Active Substance: CLONAZEPAM
     Indication: PRODUCT USED FOR UNKNOWN INDICATION
  4. XENAZINE [Suspect]
     Active Substance: TETRABENAZINE
     Dosage: DURING AND AFTER WEEK 4
     Route: 048
     Dates: start: 20150210
  5. XENAZINE [Suspect]
     Active Substance: TETRABENAZINE
     Dosage: DURING WEEK 2
     Route: 048
     Dates: start: 20150127, end: 20150203
  6. GABAPENTIN. [Concomitant]
     Active Substance: GABAPENTIN
     Indication: PRODUCT USED FOR UNKNOWN INDICATION
  7. XENAZINE [Suspect]
     Active Substance: TETRABENAZINE
     Route: 048
     Dates: start: 201704
  8. XENAZINE [Suspect]
     Active Substance: TETRABENAZINE
     Dosage: DURING WEEK 3
     Route: 048
     Dates: start: 20150203, end: 20150210

REACTIONS (3)
  - Drug dose omission [Unknown]
  - Insomnia [Not Recovered/Not Resolved]
  - Expired product administered [Unknown]

NARRATIVE: CASE EVENT DATE: 201501
